FAERS Safety Report 4725845-X (Version None)
Quarter: 2005Q3

REPORT INFORMATION
  Report Type: 
  Country: None (occurrence: None)
  Receive Date: 20050722
  Receipt Date: 20050722
  Transmission Date: 20060218
  Serious: Yes (Other)
  Sender: FDA-Public Use
  Company Number: None

PATIENT
  Age: 72 Year
  Sex: Male

DRUGS (3)
  1. LIPITOR [Suspect]
     Indication: HYPERLIPIDAEMIA
     Dosage: 20 MG QD
     Dates: start: 20050101, end: 20050601
  2. ASPIRIN [Concomitant]
  3. GLUCOSAMINE [Concomitant]

REACTIONS (1)
  - PARAESTHESIA [None]
